FAERS Safety Report 10301299 (Version 1)
Quarter: 2014Q3

REPORT INFORMATION
  Report Type: Spontaneous
  Country: US (occurrence: US)
  Receive Date: 20140714
  Receipt Date: 20140714
  Transmission Date: 20150326
  Serious: Yes (Other)
  Sender: FDA-Public Use
  Company Number: US-ROCHE-1432170

PATIENT
  Age: 66 Year
  Sex: Male

DRUGS (1)
  1. ACTILYSE [Suspect]
     Active Substance: ALTEPLASE
     Indication: CEREBROVASCULAR ACCIDENT
     Route: 042

REACTIONS (4)
  - Haemoglobin decreased [Unknown]
  - Pelvic haematoma [Unknown]
  - Retroperitoneal haematoma [Unknown]
  - Off label use [Unknown]
